FAERS Safety Report 6982277-1 (Version None)
Quarter: 2010Q3

REPORT INFORMATION
  Report Type: 
  Country: None (occurrence: None)
  Receive Date: 20100914
  Receipt Date: 20091209
  Transmission Date: 20110219
  Serious: No
  Sender: FDA-Public Use
  Company Number: US-PFIZER INC-2009308430

PATIENT
  Sex: Male
  Weight: 85.3 kg

DRUGS (2)
  1. LYRICA [Suspect]
     Indication: TOOTHACHE
     Dosage: UNK
     Route: 048
     Dates: start: 20091204
  2. XANAX [Concomitant]
     Indication: SLEEP DISORDER
     Dosage: 1 MG, 1X/DAY
     Route: 048

REACTIONS (8)
  - ARTHRALGIA [None]
  - BONE PAIN [None]
  - DISTURBANCE IN ATTENTION [None]
  - HANGOVER [None]
  - MEMORY IMPAIRMENT [None]
  - MUSCLE TIGHTNESS [None]
  - TOOTHACHE [None]
  - TREMOR [None]
